FAERS Safety Report 9168352 (Version 1)
Quarter: 2013Q1

REPORT INFORMATION
  Report Type: Spontaneous
  Country: DK (occurrence: FR)
  Receive Date: 20130318
  Receipt Date: 20130318
  Transmission Date: 20140127
  Serious: Yes (Hospitalization)
  Sender: FDA-Public Use
  Company Number: FR-FRI-1000043429

PATIENT
  Age: 64 Year
  Sex: Male

DRUGS (11)
  1. ESCITALOPRAM [Suspect]
     Indication: DEPRESSION
     Dosage: 20 MG
     Route: 048
  2. CLOPIDOGREL [Suspect]
     Indication: MYOCARDIAL INFARCTION
     Dosage: 1 DF
  3. PERINDOPRIL [Concomitant]
  4. VERAPAMIL [Concomitant]
  5. SIMVASTATIN [Concomitant]
  6. PREDNISONE [Concomitant]
  7. ESOMEPRAZOLE [Concomitant]
  8. SYMBICORT [Concomitant]
  9. ALPRAZOLAM [Concomitant]
  10. DOLIPRANE [Concomitant]
  11. FORLAX [Concomitant]

REACTIONS (1)
  - Mouth haemorrhage [Recovered/Resolved with Sequelae]
